FAERS Safety Report 8173720-3 (Version None)
Quarter: 2012Q1

REPORT INFORMATION
  Report Type: 
  Country: None (occurrence: None)
  Receive Date: 20120229
  Receipt Date: 20120217
  Transmission Date: 20120608
  Serious: Yes (Other)
  Sender: FDA-Public Use
  Company Number: US-BAUSCH-2011BL008964

PATIENT
  Age: 70 Year
  Sex: Female

DRUGS (1)
  1. ALAWAY [Suspect]
     Indication: EYE PRURITUS
     Route: 047
     Dates: start: 20111205, end: 20111205

REACTIONS (2)
  - EXPIRED DRUG ADMINISTERED [None]
  - RETINAL HAEMORRHAGE [None]
